FAERS Safety Report 5195857-3 (Version None)
Quarter: 2007Q1

REPORT INFORMATION
  Report Type: 
  Country: None (occurrence: None)
  Receive Date: 20070102
  Receipt Date: 20061228
  Transmission Date: 20070707
  Serious: Yes (Other)
  Sender: FDA-Public Use
  Company Number: US-GLAXOSMITHKLINE-A0613871A

PATIENT
  Age: 87 Year
  Sex: Female

DRUGS (6)
  1. ADVAIR DISKUS 100/50 [Suspect]
     Indication: ASTHMA
     Dosage: 1PUFF TWICE PER DAY
     Route: 055
     Dates: start: 20031210, end: 20060701
  2. PLAVIX [Concomitant]
  3. PROTONIX [Concomitant]
  4. DIOVAN [Concomitant]
  5. FUROSEMIDE [Concomitant]
  6. POTASSIUM ACETATE [Concomitant]

REACTIONS (5)
  - CATARACT [None]
  - EYE DISORDER [None]
  - LASER THERAPY [None]
  - PRURITUS [None]
  - VISUAL ACUITY REDUCED [None]
